FAERS Safety Report 18924813 (Version 2)
Quarter: 2021Q1

REPORT INFORMATION
  Report Type: Spontaneous
  Country: US (occurrence: US)
  Receive Date: 20210223
  Receipt Date: 20210226
  Transmission Date: 20210420
  Serious: No
  Sender: FDA-Public Use
  Company Number: US-SA-2021SA060058

PATIENT
  Age: 56 Year
  Sex: Male

DRUGS (8)
  1. TRIAMCINOLON [TRIAMCINOLONE] [Concomitant]
     Active Substance: TRIAMCINOLONE
     Dosage: CRE
  2. VENLAFAXINE [Concomitant]
     Active Substance: VENLAFAXINE HYDROCHLORIDE
  3. KETOCONAZOLE. [Concomitant]
     Active Substance: KETOCONAZOLE
     Dosage: SHE
  4. HYDROCORTISONE VALERATE. [Concomitant]
     Active Substance: HYDROCORTISONE VALERATE
     Dosage: CRE
  5. LOSARTAN POTASSIUM. [Concomitant]
     Active Substance: LOSARTAN POTASSIUM
  6. DUPIXENT [Suspect]
     Active Substance: DUPILUMAB
     Indication: DERMATITIS ATOPIC
     Dosage: 300 MG
     Route: 058
     Dates: start: 20201208
  7. LAMOTRIGINE. [Concomitant]
     Active Substance: LAMOTRIGINE
  8. ESZOPICLONE. [Concomitant]
     Active Substance: ESZOPICLONE

REACTIONS (3)
  - Dermatitis atopic [Not Recovered/Not Resolved]
  - Rash [Not Recovered/Not Resolved]
  - Condition aggravated [Not Recovered/Not Resolved]
